FAERS Safety Report 20676119 (Version 1)
Quarter: 2022Q2

REPORT INFORMATION
  Report Type: Report from Study
  Country: AU (occurrence: None)
  Receive Date: 20220405
  Receipt Date: 20220405
  Transmission Date: 20220721
  Serious: Yes (Hospitalization)
  Sender: FDA-Public Use
  Company Number: AU-Eisai Medical Research-EC-2022-111731

PATIENT
  Age: 84 Year
  Sex: Female
  Weight: 70 kg

DRUGS (4)
  1. LENVIMA [Suspect]
     Active Substance: LENVATINIB
     Indication: Thyroid cancer
     Route: 048
     Dates: start: 20181006, end: 2018
  2. LENVIMA [Suspect]
     Active Substance: LENVATINIB
     Route: 048
     Dates: start: 2019, end: 20191225
  3. LENVIMA [Suspect]
     Active Substance: LENVATINIB
     Dosage: ALTERNATE MONTHS
     Route: 048
     Dates: start: 202003, end: 202003
  4. LENVIMA [Suspect]
     Active Substance: LENVATINIB
     Dosage: ALTERNATE MONTHS
     Route: 048

REACTIONS (7)
  - Syncope [Recovered/Resolved]
  - Abdominal pain [Recovering/Resolving]
  - Diarrhoea [Recovered/Resolved]
  - Malignant neoplasm progression [Recovered/Resolved]
  - Hypertension [Unknown]
  - Cognitive disorder [Unknown]
  - Product dose omission issue [Unknown]

NARRATIVE: CASE EVENT DATE: 20181029
